FAERS Safety Report 14148947 (Version 1)
Quarter: 2017Q4

REPORT INFORMATION
  Report Type: Spontaneous
  Country: IT (occurrence: IT)
  Receive Date: 20171101
  Receipt Date: 20171101
  Transmission Date: 20180321
  Serious: Yes (Hospitalization)
  Sender: FDA-Public Use
  Company Number: IT-BAYER-2017-205247

PATIENT
  Age: 40 Year
  Sex: Male

DRUGS (4)
  1. TRAMADOL HYDROCHLORIDE. [Suspect]
     Active Substance: TRAMADOL HYDROCHLORIDE
     Indication: PAIN
     Dosage: DAILY DOSE 300 MG
     Route: 042
     Dates: start: 20080428, end: 20080505
  2. CIPROFLOXACIN. [Suspect]
     Active Substance: CIPROFLOXACIN
     Indication: OSTEOMYELITIS
     Dosage: DAILY DOSE 1500 MG
     Route: 048
     Dates: start: 20080428, end: 20080505
  3. OMEPRAZOLE. [Concomitant]
     Active Substance: OMEPRAZOLE
     Dosage: UNK
  4. TARGOSID [Suspect]
     Active Substance: TEICOPLANIN
     Indication: OSTEOMYELITIS
     Dosage: DAILY DOSE 400 MG
     Route: 042
     Dates: start: 20080428, end: 20080505

REACTIONS (4)
  - Persistent generalised lymphadenopathy [Recovered/Resolved]
  - Pyrexia [Recovered/Resolved]
  - Erythema [Recovered/Resolved]
  - Hepatosplenomegaly [Recovered/Resolved]

NARRATIVE: CASE EVENT DATE: 20080506
